FAERS Safety Report 18641365 (Version 1)
Quarter: 2020Q4

REPORT INFORMATION
  Report Type: Spontaneous
  Country: US (occurrence: US)
  Receive Date: 20201221
  Receipt Date: 20201221
  Transmission Date: 20210114
  Serious: No
  Sender: FDA-Public Use
  Company Number: US-ALLERGAN-2022481US

PATIENT
  Sex: Female

DRUGS (2)
  1. STATIN [Concomitant]
     Active Substance: UNSPECIFIED INGREDIENT
  2. BYSTOLIC [Suspect]
     Active Substance: NEBIVOLOL HYDROCHLORIDE
     Indication: BLOOD PRESSURE INCREASED
     Dosage: 10 MG, QD

REACTIONS (3)
  - Prescription drug used without a prescription [Unknown]
  - Blood pressure increased [Recovering/Resolving]
  - Expired product administered [Unknown]
